FAERS Safety Report 11219663 (Version 1)
Quarter: 2015Q2

REPORT INFORMATION
  Report Type: Spontaneous
  Country: IN (occurrence: IN)
  Receive Date: 20150625
  Receipt Date: 20150625
  Transmission Date: 20150821
  Serious: Yes (Congenital Anomaly, Other)
  Sender: FDA-Public Use
  Company Number: PHHY2015IN071409

PATIENT
  Sex: Male
  Weight: 2.25 kg

DRUGS (1)
  1. IMATINIB [Suspect]
     Active Substance: IMATINIB
     Indication: PRODUCT USED FOR UNKNOWN INDICATION
     Dosage: MATERNAL DOSE: 400 MG/DAY
     Route: 064

REACTIONS (12)
  - Ectopic kidney [Unknown]
  - Accessory auricle [Unknown]
  - Premature baby [Unknown]
  - Spina bifida occulta [Unknown]
  - Single functional kidney [Unknown]
  - Cerebral ventricle dilatation [Unknown]
  - Foetal exposure during pregnancy [Unknown]
  - Microtia [Unknown]
  - Dextrocardia [Unknown]
  - Heterotaxia [Unknown]
  - Hemivertebra [Unknown]
  - Anal atresia [Unknown]
